FAERS Safety Report 9729516 (Version 2)
Quarter: 2013Q4

REPORT INFORMATION
  Report Type: Spontaneous
  Country: US (occurrence: US)
  Receive Date: 20131204
  Receipt Date: 20131204
  Transmission Date: 20140711
  Serious: No
  Sender: FDA-Public Use
  Company Number: US-GILEAD-2009-0021394

PATIENT
  Sex: Female
  Weight: 41.73 kg

DRUGS (12)
  1. LETAIRIS [Suspect]
     Indication: PULMONARY ARTERIAL HYPERTENSION
     Route: 048
     Dates: start: 20080124
  2. LETAIRIS [Suspect]
  3. METOPROLOL [Concomitant]
  4. NIFEDIPINE [Concomitant]
  5. ISOSORBIDE [Concomitant]
  6. ASPIRIN [Concomitant]
  7. ATROVENT [Concomitant]
  8. FOSAMAX [Concomitant]
  9. PLAQUENIL [Concomitant]
  10. NEXIUM [Concomitant]
  11. VITAMIN D [Concomitant]
  12. CALCIUM [Concomitant]

REACTIONS (4)
  - Nasal discomfort [Unknown]
  - Sinus disorder [Unknown]
  - Upper-airway cough syndrome [Unknown]
  - Nasal congestion [Unknown]
